FAERS Safety Report 8481553-3 (Version None)
Quarter: 2012Q3

REPORT INFORMATION
  Report Type: 
  Country: None (occurrence: None)
  Receive Date: 20120702
  Receipt Date: 20120618
  Transmission Date: 20120928
  Serious: Yes (Other)
  Sender: FDA-Public Use
  Company Number: PT-AMGEN-PRTSP2012039356

PATIENT
  Age: 39 Year
  Sex: Male

DRUGS (2)
  1. ENBREL [Suspect]
     Indication: PSORIASIS
     Dosage: 50 MG, WEEKLY
     Route: 058
     Dates: start: 20091106
  2. METHOTREXATE [Concomitant]
     Indication: PSORIASIS
     Dosage: 2.5 MG, 4X/DAY
     Route: 048

REACTIONS (6)
  - TREATMENT NONCOMPLIANCE [None]
  - RASH [None]
  - PSORIASIS [None]
  - DRUG INEFFECTIVE [None]
  - EXFOLIATIVE RASH [None]
  - INCORRECT STORAGE OF DRUG [None]
